FAERS Safety Report 18389466 (Version 2)
Quarter: 2021Q2

REPORT INFORMATION
  Report Type: Spontaneous
  Country: US (occurrence: US)
  Receive Date: 20201016
  Receipt Date: 20210520
  Transmission Date: 20210717
  Serious: Yes (Other)
  Sender: FDA-Public Use
  Company Number: US-SA-2020SA288341

PATIENT
  Age: 42 Year
  Sex: Male

DRUGS (1)
  1. ZANTAC [Suspect]
     Active Substance: RANITIDINE HYDROCHLORIDE
     Indication: HYPERCHLORHYDRIA
     Dosage: 25 MG. FREQUENCY: OTHER
     Dates: start: 199808, end: 201111

REACTIONS (1)
  - Prostate cancer stage I [Unknown]

NARRATIVE: CASE EVENT DATE: 20121001
